FAERS Safety Report 19686278 (Version 1)
Quarter: 2021Q3

REPORT INFORMATION
  Report Type: Spontaneous
  Country: GB (occurrence: GB)
  Receive Date: 20210811
  Receipt Date: 20210811
  Transmission Date: 20211014
  Serious: Yes (Other)
  Sender: FDA-Public Use
  Company Number: GB-PFIZER INC-2021617732

PATIENT
  Age: 46 Year
  Sex: Female

DRUGS (5)
  1. ASTRAZENECA COVID?19 VACCINE [Suspect]
     Active Substance: AZD-1222
     Dosage: 1 DF, SINGLE
     Dates: start: 20210423, end: 20210423
  2. BECLOMETHASONE [Concomitant]
     Active Substance: BECLOMETHASONE
     Dosage: UNK
  3. METHOTREXATE SODIUM. [Suspect]
     Active Substance: METHOTREXATE SODIUM
     Dosage: UNK
  4. ASTRAZENECA COVID?19 VACCINE [Suspect]
     Active Substance: AZD-1222
     Indication: COVID-19 IMMUNISATION
     Dosage: 1 DF, SINGLE
     Dates: start: 20210205, end: 20210205
  5. USTEKINUMAB [Suspect]
     Active Substance: USTEKINUMAB
     Indication: ANKYLOSING SPONDYLITIS
     Dosage: UNK

REACTIONS (11)
  - Oedema peripheral [Recovering/Resolving]
  - Pleural effusion [Unknown]
  - Effusion [Unknown]
  - Pericardial effusion [Unknown]
  - Urticaria [Recovering/Resolving]
  - Malaise [Recovering/Resolving]
  - Swelling [Unknown]
  - Lower respiratory tract infection [Unknown]
  - Pneumonia [Unknown]
  - Arthralgia [Recovering/Resolving]
  - Vaccination site induration [Recovering/Resolving]

NARRATIVE: CASE EVENT DATE: 20210424
